FAERS Safety Report 8917748 (Version 1)
Quarter: 2012Q4

REPORT INFORMATION
  Report Type: 
  Country: US (occurrence: US)
  Receive Date: 20121120
  Receipt Date: 20121120
  Transmission Date: 20130627
  Serious: No
  Sender: FDA-Public Use
  Company Number: US-TEVA-371362USA

PATIENT
  Age: 7 None
  Sex: Male

DRUGS (5)
  1. TREANDA [Suspect]
     Indication: NON-HODGKIN^S LYMPHOMA
     Route: 042
  2. ZOFRAN [Concomitant]
  3. LISINOPRIL/HCTZ [Concomitant]
  4. OXYCODONE [Concomitant]
  5. AMITRIPTYLINE [Concomitant]

REACTIONS (1)
  - Myalgia [Not Recovered/Not Resolved]
